FAERS Safety Report 17264255 (Version 1)
Quarter: 2020Q1

REPORT INFORMATION
  Report Type: Spontaneous
  Country: US (occurrence: US)
  Receive Date: 20200113
  Receipt Date: 20200113
  Transmission Date: 20200409
  Serious: Yes (Other)
  Sender: FDA-Public Use
  Company Number: US-ANIPHARMA-2020-US-000220

PATIENT
  Age: 32 Year
  Sex: Female

DRUGS (4)
  1. VANCOMYCIN HYDROCHLORIDE (NON-SPECIFIC) [Suspect]
     Active Substance: VANCOMYCIN HYDROCHLORIDE
     Indication: PRODUCT USED FOR UNKNOWN INDICATION
  2. NILOTINIB [Concomitant]
     Active Substance: NILOTINIB
  3. BLINATUMOMAB [Concomitant]
     Active Substance: BLINATUMOMAB
  4. SULFAMETHOXAZOLE + TRIMETHOPRIM [Suspect]
     Active Substance: SULFAMETHOXAZOLE\TRIMETHOPRIM
     Indication: PRODUCT USED FOR UNKNOWN INDICATION

REACTIONS (1)
  - Haemolysis [Unknown]
